FAERS Safety Report 23599122 (Version 1)
Quarter: 2024Q1

REPORT INFORMATION
  Report Type: Spontaneous
  Country: US (occurrence: US)
  Receive Date: 20240306
  Receipt Date: 20240306
  Transmission Date: 20240410
  Serious: Yes (Hospitalization)
  Sender: FDA-Public Use
  Company Number: US-BRISTOL-MYERS SQUIBB COMPANY-2024-034881

PATIENT
  Age: 74 Year
  Sex: Male

DRUGS (1)
  1. LENALIDOMIDE [Suspect]
     Active Substance: LENALIDOMIDE
     Indication: Plasma cell myeloma
     Dosage: TAKE1 CAPSULE BY MOUTH EVERY DAY ON DAYS 1-14, THEN 7 DAYS OFF, REPEAT
     Route: 048
     Dates: start: 20230512

REACTIONS (2)
  - Adverse event [Recovered/Resolved]
  - Off label use [Unknown]
